FAERS Safety Report 15844810 (Version 1)
Quarter: 2019Q1

REPORT INFORMATION
  Report Type: Spontaneous
  Country: AU (occurrence: AU)
  Receive Date: 20190118
  Receipt Date: 20190118
  Transmission Date: 20190417
  Serious: Yes (Hospitalization)
  Sender: FDA-Public Use
  Company Number: AU-MYLANLABS-2019M1004317

PATIENT
  Age: 30 Year
  Sex: Female

DRUGS (4)
  1. TRETINOIN. [Suspect]
     Active Substance: TRETINOIN
     Indication: ACUTE PROMYELOCYTIC LEUKAEMIA
     Dosage: ON DAY 2, 4, 6 AND 8 OF APML4 CHEMOTHERAPY PROTOCOL
     Route: 065
  2. ARSENIC TRIOXIDE. [Suspect]
     Active Substance: ARSENIC TRIOXIDE
     Indication: ACUTE PROMYELOCYTIC LEUKAEMIA
     Dosage: FROM DAY 9 ONWARDS IN APML4 CHEMOTHERAPY PROTOCOL
     Route: 065
  3. PREDNISOLONE. [Concomitant]
     Active Substance: PREDNISOLONE
     Indication: PROPHYLAXIS
     Dosage: FROM DAYS 1-10 IN APML4 CHEMOTHERAPY PROTOCOL
     Route: 065
  4. IDARUBICIN [Concomitant]
     Active Substance: IDARUBICIN
     Indication: ACUTE PROMYELOCYTIC LEUKAEMIA
     Dosage: ON DAY 2, 4, 6 AND 8 OF APML4 CHEMOTHERAPY PROTOCOL
     Route: 065

REACTIONS (5)
  - Chorioretinopathy [Recovered/Resolved]
  - Retinal haemorrhage [Recovered/Resolved]
  - Retinal thickening [Recovered/Resolved]
  - Serous retinal detachment [Recovered/Resolved]
  - Differentiation syndrome [Recovered/Resolved]
